FAERS Safety Report 5411027-5 (Version None)
Quarter: 2007Q3

REPORT INFORMATION
  Report Type: 
  Country: None (occurrence: None)
  Receive Date: 20070713
  Receipt Date: 20070607
  Transmission Date: 20080115
  Serious: No
  Sender: FDA-Public Use
  Company Number: 2007SP002154

PATIENT
  Sex: Female

DRUGS (2)
  1. LUNESTA [Suspect]
     Dosage: 3 MG;1X;ORAL;2 MG, ORAL
     Route: 048
     Dates: start: 20070604, end: 20070604
  2. LUNESTA [Suspect]
     Dosage: 3 MG;1X;ORAL;2 MG, ORAL
     Route: 048
     Dates: start: 20070605

REACTIONS (1)
  - DYSGEUSIA [None]
